FAERS Safety Report 16347545 (Version 1)
Quarter: 2019Q2

REPORT INFORMATION
  Report Type: Report from Study
  Country: DE (occurrence: DE)
  Receive Date: 20190523
  Receipt Date: 20190523
  Transmission Date: 20190711
  Serious: Yes (Death)
  Sender: FDA-Public Use
  Company Number: DE-MYLANLABS-2019M1046995

PATIENT
  Age: 77 Year
  Sex: Female
  Weight: 80 kg

DRUGS (3)
  1. PACLITAXEL. [Concomitant]
     Active Substance: PACLITAXEL
     Indication: BREAST CANCER
     Dosage: 175 MILLIGRAM
     Route: 065
     Dates: start: 20110509, end: 20110905
  2. TRASTUZUMAB. [Suspect]
     Active Substance: TRASTUZUMAB
     Dosage: 150 MILLIGRAM
     Route: 065
     Dates: start: 20110516, end: 20110516
  3. TRASTUZUMAB. [Suspect]
     Active Substance: TRASTUZUMAB
     Indication: BREAST CANCER
     Dosage: 4 MILLIGRAM/KILOGRAM
     Dates: start: 20110509, end: 20110509

REACTIONS (1)
  - Death [Fatal]

NARRATIVE: CASE EVENT DATE: 20120111
